FAERS Safety Report 6576335-3 (Version None)
Quarter: 2010Q1

REPORT INFORMATION
  Report Type: 
  Country: None (occurrence: None)
  Receive Date: 20100210
  Receipt Date: 20100123
  Transmission Date: 20100710
  Serious: No
  Sender: FDA-Public Use
  Company Number: IT-JNJFOC-20100109307

PATIENT
  Age: 80 Year
  Sex: Female

DRUGS (1)
  1. DURAGESIC-100 [Suspect]
     Indication: DRUG USE FOR UNKNOWN INDICATION
     Route: 062

REACTIONS (3)
  - MEDICATION ERROR [None]
  - OVERDOSE [None]
  - VOMITING [None]
